FAERS Safety Report 24545973 (Version 1)
Quarter: 2024Q4

REPORT INFORMATION
  Report Type: Spontaneous
  Country: FR (occurrence: FR)
  Receive Date: 20241024
  Receipt Date: 20241024
  Transmission Date: 20250114
  Serious: Yes (Hospitalization)
  Sender: MERCK KGAA
  Company Number: None

PATIENT
  Age: 24 Day
  Sex: Male
  Weight: 4 kg

DRUGS (3)
  1. LEVOTHYROXINE [Suspect]
     Active Substance: LEVOTHYROXINE
     Indication: Congenital hypothyroidism
     Dates: start: 20240920
  2. NIRSEVIMAB [Suspect]
     Active Substance: NIRSEVIMAB
     Indication: Antiviral prophylaxis
     Route: 030
     Dates: start: 20241004, end: 20241004
  3. CHOLECALCIFEROL [Suspect]
     Active Substance: CHOLECALCIFEROL
     Indication: Prophylaxis
     Dates: start: 20240913

REACTIONS (2)
  - Accelerated idioventricular rhythm [Not Recovered/Not Resolved]
  - Supraventricular tachycardia [Not Recovered/Not Resolved]

NARRATIVE: CASE EVENT DATE: 20241006
